FAERS Safety Report 22296505 (Version 1)
Quarter: 2023Q2

REPORT INFORMATION
  Report Type: Spontaneous
  Country: US (occurrence: None)
  Receive Date: 20230508
  Receipt Date: 20230508
  Transmission Date: 20230722
  Serious: No
  Sender: FDA-Public Use
  Company Number: None

PATIENT

DRUGS (3)
  1. NOREPINEPHRINE BITARTRATE [Suspect]
     Active Substance: NOREPINEPHRINE BITARTRATE
  2. VASOPRESSIN [Suspect]
     Active Substance: VASOPRESSIN
  3. DEVICE [Suspect]
     Active Substance: DEVICE

REACTIONS (5)
  - Device failure [None]
  - Blood pressure decreased [None]
  - Wrong product administered [None]
  - Product communication issue [None]
  - Device malfunction [None]
